FAERS Safety Report 9818119 (Version 1)
Quarter: 2013Q4

REPORT INFORMATION
  Report Type: Spontaneous
  Country: US (occurrence: None)
  Receive Date: 20131223
  Receipt Date: 20131223
  Transmission Date: 20140711
  Serious: No
  Sender: FDA-Public Use
  Company Number: 222503

PATIENT
  Sex: Female

DRUGS (1)
  1. PICATO [Suspect]
     Indication: PRECANCEROUS SKIN LESION
     Dosage: (1 IN 1 D), TOPICAL
     Route: 061
     Dates: start: 20130622, end: 20130622

REACTIONS (7)
  - Application site pain [None]
  - Application site erythema [None]
  - Application site vesicles [None]
  - Application site swelling [None]
  - Eye swelling [None]
  - Application site exfoliation [None]
  - Incorrect drug administration duration [None]
